FAERS Safety Report 4606127-3 (Version None)
Quarter: 2005Q1

REPORT INFORMATION
  Report Type: 
  Country: None (occurrence: None)
  Receive Date: 20050309
  Receipt Date: 20050228
  Transmission Date: 20050727
  Serious: Yes (Hospitalization, Other)
  Sender: FDA-Public Use
  Company Number: 2005025718

PATIENT
  Age: 34 Year
  Sex: Female
  Weight: 97.5234 kg

DRUGS (4)
  1. PHENYTOIN [Suspect]
     Indication: CONVULSION
     Dates: start: 20040301, end: 20040301
  2. NEURONTIN [Suspect]
     Indication: CONVULSION
     Dosage: 900 MG (300 MG,3 IN 1 D), ORAL
     Route: 048
     Dates: start: 20040501
  3. PHENOBARBITAL TAB [Suspect]
     Indication: CONVULSION
     Dates: start: 20040101, end: 20040101
  4. LAMICTAL [Concomitant]

REACTIONS (7)
  - AMNESIA [None]
  - CONVULSION [None]
  - DISEASE RECURRENCE [None]
  - LIVER FUNCTION TEST ABNORMAL [None]
  - RASH GENERALISED [None]
  - SWELLING FACE [None]
  - TREATMENT NONCOMPLIANCE [None]
